FAERS Safety Report 6247541-2 (Version None)
Quarter: 2009Q2

REPORT INFORMATION
  Report Type: 
  Country: None (occurrence: None)
  Receive Date: 20090626
  Receipt Date: 20090617
  Transmission Date: 20091009
  Serious: Yes (Hospitalization, Other)
  Sender: FDA-Public Use
  Company Number: US-JNJFOC-20080701004

PATIENT
  Sex: Female
  Weight: 62 kg

DRUGS (17)
  1. GOLIMUMAB [Suspect]
     Route: 058
  2. GOLIMUMAB [Suspect]
     Route: 058
  3. GOLIMUMAB [Suspect]
     Route: 058
  4. GOLIMUMAB [Suspect]
     Route: 058
  5. GOLIMUMAB [Suspect]
     Route: 058
  6. GOLIMUMAB [Suspect]
     Route: 058
  7. GOLIMUMAB [Suspect]
     Route: 058
  8. GOLIMUMAB [Suspect]
     Route: 058
  9. GOLIMUMAB [Suspect]
     Route: 058
  10. GOLIMUMAB [Suspect]
     Route: 058
  11. GOLIMUMAB [Suspect]
     Route: 058
  12. GOLIMUMAB [Suspect]
     Route: 058
  13. GOLIMUMAB [Suspect]
     Route: 058
  14. GOLIMUMAB [Suspect]
     Indication: RHEUMATOID ARTHRITIS
     Route: 058
  15. FOLIC ACID [Concomitant]
     Route: 048
  16. METHOTREXATE [Concomitant]
     Route: 048
  17. PRAVASTATIN [Concomitant]
     Route: 048

REACTIONS (1)
  - PANCREATITIS [None]
